FAERS Safety Report 12923329 (Version 1)
Quarter: 2016Q4

REPORT INFORMATION
  Report Type: Spontaneous
  Country: US (occurrence: US)
  Receive Date: 20161109
  Receipt Date: 20161109
  Transmission Date: 20170207
  Serious: Yes (Hospitalization)
  Sender: FDA-Public Use
  Company Number: None

PATIENT
  Age: 64 Year
  Sex: Female
  Weight: 116.2 kg

DRUGS (10)
  1. ROCALTROL [Concomitant]
     Active Substance: CALCITRIOL
  2. COLCHIN [Concomitant]
  3. VITAMIN B12 [Concomitant]
     Active Substance: CYANOCOBALAMIN
  4. CYMBALTA [Concomitant]
     Active Substance: DULOXETINE HYDROCHLORIDE
  5. ELIQUIS [Suspect]
     Active Substance: APIXABAN
     Indication: ATRIAL FIBRILLATION
     Dosage: ELIQUIS - DATES OF USE - CHRONIC
     Route: 048
  6. COLACE [Concomitant]
     Active Substance: DOCUSATE SODIUM
  7. COREG [Concomitant]
     Active Substance: CARVEDILOL
  8. ASCORBIC ACID. [Concomitant]
     Active Substance: ASCORBIC ACID
  9. BENADRYL [Concomitant]
     Active Substance: DIPHENHYDRAMINE HYDROCHLORIDE
  10. EPIPEN [Concomitant]
     Active Substance: EPINEPHRINE

REACTIONS (3)
  - Epistaxis [None]
  - Haemorrhagic anaemia [None]
  - Dyspnoea [None]

NARRATIVE: CASE EVENT DATE: 20150909
